FAERS Safety Report 25914477 (Version 1)
Quarter: 2025Q4

REPORT INFORMATION
  Report Type: Spontaneous
  Country: RS (occurrence: RS)
  Receive Date: 20251013
  Receipt Date: 20251013
  Transmission Date: 20260118
  Serious: Yes (Hospitalization, Other)
  Sender: BRISTOL-MYERS SQUIBB COMPANY
  Company Number: RS-BRISTOL-MYERS SQUIBB COMPANY-2025-137630

PATIENT
  Age: 42 Year
  Sex: Male

DRUGS (2)
  1. OPDIVO [Suspect]
     Active Substance: NIVOLUMAB
     Indication: Metastatic malignant melanoma
     Dosage: 41 CYCLES
     Dates: start: 20201211, end: 20230510
  2. OPDIVO [Suspect]
     Active Substance: NIVOLUMAB
     Dates: start: 20240510, end: 20250514

REACTIONS (10)
  - Malignant neoplasm progression [Unknown]
  - Deafness [Unknown]
  - Leukocytosis [Unknown]
  - Hyponatraemia [Unknown]
  - Hypochloraemia [Unknown]
  - Central nervous system inflammation [Unknown]
  - Central nervous system infection [Unknown]
  - Klebsiella urinary tract infection [Unknown]
  - General physical health deterioration [Unknown]
  - Metastatic malignant melanoma [Unknown]

NARRATIVE: CASE EVENT DATE: 20230101
